FAERS Safety Report 9445347 (Version 3)
Quarter: 2014Q2

REPORT INFORMATION
  Report Type: Spontaneous
  Country: US (occurrence: US)
  Receive Date: 20130807
  Receipt Date: 20140502
  Transmission Date: 20141212
  Serious: No
  Sender: FDA-Public Use
  Company Number: US-BAYER-2013-092708

PATIENT
  Age: 23 Year
  Sex: Female

DRUGS (3)
  1. MIRENA [Suspect]
     Indication: MENORRHAGIA
     Dosage: 20 MCG/24HR, CONT
     Route: 015
     Dates: start: 20130603, end: 20130603
  2. MIRENA [Suspect]
     Indication: CONTRACEPTION
  3. MIRENA [Suspect]
     Indication: MENORRHAGIA

REACTIONS (8)
  - Syncope [None]
  - Presyncope [None]
  - Complication of device insertion [None]
  - Dizziness [None]
  - Hyperhidrosis [None]
  - Asthenia [None]
  - Coordination abnormal [None]
  - Abdominal pain lower [None]
